FAERS Safety Report 8287595-5 (Version None)
Quarter: 2012Q2

REPORT INFORMATION
  Report Type: 
  Country: None (occurrence: None)
  Receive Date: 20120416
  Receipt Date: 20120409
  Transmission Date: 20120825
  Serious: Yes (Hospitalization, Other)
  Sender: FDA-Public Use
  Company Number: PHHY2012JP030506

PATIENT
  Age: 46 Year
  Sex: Female

DRUGS (6)
  1. TALION [Concomitant]
     Dosage: UNK UKN, UNK
     Route: 048
     Dates: end: 20110712
  2. TEGRETOL [Suspect]
     Indication: SINUSITIS
     Dosage: 1 DF, BID
     Route: 048
     Dates: start: 20110618, end: 20110712
  3. VOLTAREN [Concomitant]
     Dosage: UNK UKN, UNK
     Route: 048
     Dates: start: 20110618, end: 20110712
  4. SELBEX [Concomitant]
     Dosage: UNK UKN, UNK
     Route: 048
     Dates: start: 20110618, end: 20110712
  5. CLARITHROMYCIN [Concomitant]
     Dosage: UNK UKN, UNK
     Route: 048
     Dates: end: 20110712
  6. MUCODYNE [Concomitant]
     Dosage: UNK UKN, UNK
     Route: 048
     Dates: end: 20110712

REACTIONS (10)
  - HEPATIC FUNCTION ABNORMAL [None]
  - VOMITING [None]
  - RASH [None]
  - SHOCK [None]
  - DRUG ERUPTION [None]
  - LIVER INJURY [None]
  - PRURITUS GENERALISED [None]
  - LYMPHOCYTE STIMULATION TEST [None]
  - GENERALISED ERYTHEMA [None]
  - PYREXIA [None]
